FAERS Safety Report 8932689 (Version 2)
Quarter: 2013Q1

REPORT INFORMATION
  Report Type: Spontaneous
  Country: DE (occurrence: DE)
  Receive Date: 20121128
  Receipt Date: 20130222
  Transmission Date: 20140127
  Serious: Yes (Other)
  Sender: FDA-Public Use
  Company Number: DE-B.I. PHARMACEUTICALS,INC./RIDGEFIELD-2012-DE-02781DE

PATIENT
  Sex: 0

DRUGS (1)
  1. MICARDIS PLUS [Suspect]

REACTIONS (4)
  - Hypertensive crisis [Unknown]
  - Arrhythmia [Unknown]
  - Influenza [Unknown]
  - Osteoarthritis [Unknown]
